FAERS Safety Report 13157601 (Version 2)
Quarter: 2017Q2

REPORT INFORMATION
  Report Type: Report from Study
  Country: NL (occurrence: NL)
  Receive Date: 20170127
  Receipt Date: 20170503
  Transmission Date: 20170830
  Serious: Yes (Death)
  Sender: FDA-Public Use
  Company Number: NL-ROCHE-1885249

PATIENT
  Age: 62 Year
  Sex: Male

DRUGS (3)
  1. CAPECITABINE. [Suspect]
     Active Substance: CAPECITABINE
     Indication: OESOPHAGEAL CARCINOMA
     Route: 065
  2. CISPLATIN. [Concomitant]
     Active Substance: CISPLATIN
  3. EPIRUBICIN [Concomitant]
     Active Substance: EPIRUBICIN

REACTIONS (4)
  - Diarrhoea [Fatal]
  - Mucosal inflammation [Fatal]
  - Leukopenia [Fatal]
  - Thrombocytopenia [Fatal]
